FAERS Safety Report 15806100 (Version 3)
Quarter: 2019Q1

REPORT INFORMATION
  Report Type: Spontaneous
  Country: CA (occurrence: CA)
  Receive Date: 20190110
  Receipt Date: 20190204
  Transmission Date: 20190417
  Serious: Yes (Other)
  Sender: FDA-Public Use
  Company Number: CA-TEVA-2018-CA-988350

PATIENT
  Sex: Male

DRUGS (5)
  1. TEVA FENTANYL [Suspect]
     Active Substance: FENTANYL
     Indication: PAIN
     Dosage: STRENGTH: 50MCG/HR, DOSE AND FREQUENCY: 50MCG EVERY 48 HOURS
     Route: 062
     Dates: start: 2016
  2. TEVA FENTANYL [Suspect]
     Active Substance: FENTANYL
     Indication: PAIN MANAGEMENT
  3. BAYERS ASA 81MG [Concomitant]
     Dosage: DOSE 81MG AT NIGHT, 1 PER DAY
  4. MELATONIN [Concomitant]
     Active Substance: MELATONIN
     Indication: SLEEP DISORDER
     Dosage: DOSE 9 MG  AT NIGHT
  5. PMS - OXYCODONE [Concomitant]
     Indication: BREAKTHROUGH PAIN
     Dosage: 2 TABLETS FOR 3 DAYS IN 10 DAYS

REACTIONS (26)
  - Intentional product misuse [Unknown]
  - Restless legs syndrome [Not Recovered/Not Resolved]
  - Abdominal pain [Not Recovered/Not Resolved]
  - Nervousness [Not Recovered/Not Resolved]
  - Diarrhoea [Not Recovered/Not Resolved]
  - Agitation [Not Recovered/Not Resolved]
  - Chills [Not Recovered/Not Resolved]
  - Tremor [Not Recovered/Not Resolved]
  - Tinnitus [Not Recovered/Not Resolved]
  - Withdrawal syndrome [Not Recovered/Not Resolved]
  - Pain [Not Recovered/Not Resolved]
  - Drug effect decreased [Unknown]
  - Lacrimation increased [Not Recovered/Not Resolved]
  - Wrong technique in product usage process [Unknown]
  - Insomnia [Not Recovered/Not Resolved]
  - Hyperhidrosis [Not Recovered/Not Resolved]
  - Mental impairment [Not Recovered/Not Resolved]
  - Depression [Not Recovered/Not Resolved]
  - Skin exfoliation [Not Recovered/Not Resolved]
  - Yawning [Not Recovered/Not Resolved]
  - Muscle spasms [Not Recovered/Not Resolved]
  - Rhinorrhoea [Not Recovered/Not Resolved]
  - Drug dependence [Not Recovered/Not Resolved]
  - Product adhesion issue [Unknown]
  - Adverse drug reaction [Not Recovered/Not Resolved]
  - Mood swings [Not Recovered/Not Resolved]
